FAERS Safety Report 17043763 (Version 9)
Quarter: 2022Q2

REPORT INFORMATION
  Report Type: Spontaneous
  Country: US (occurrence: US)
  Receive Date: 20191118
  Receipt Date: 20220609
  Transmission Date: 20220720
  Serious: Yes (Other)
  Sender: FDA-Public Use
  Company Number: US-PFIZER INC-2019491551

PATIENT
  Age: 57 Year
  Sex: Female
  Weight: 50.8 kg

DRUGS (8)
  1. TOVIAZ [Suspect]
     Active Substance: FESOTERODINE FUMARATE
     Indication: Bladder spasm
     Dosage: 1/2 TABLET, DAILY
     Route: 048
  2. TOVIAZ [Suspect]
     Active Substance: FESOTERODINE FUMARATE
     Indication: Urinary incontinence
     Dosage: 8 MG, 1X/DAY [ONCE AT NIGHT]
  3. TOVIAZ [Suspect]
     Active Substance: FESOTERODINE FUMARATE
     Indication: Hypertonic bladder
     Dosage: UNK
  4. TOVIAZ [Suspect]
     Active Substance: FESOTERODINE FUMARATE
     Dosage: UNK, ALTERNATE DAY
  5. TOVIAZ [Suspect]
     Active Substance: FESOTERODINE FUMARATE
     Dosage: 4 MG
  6. TOVIAZ [Suspect]
     Active Substance: FESOTERODINE FUMARATE
     Dosage: 4 MG, DAILY (HALF TABLET)
     Route: 048
  7. ACYCLOVIR [Concomitant]
     Active Substance: ACYCLOVIR
     Dosage: UNK
  8. PROPIONATE [Concomitant]
     Dosage: UNK

REACTIONS (13)
  - Breast cancer [Unknown]
  - Lymphoedema [Unknown]
  - Fall [Unknown]
  - Compression fracture [Unknown]
  - Spinal fracture [Unknown]
  - Wrong technique in product usage process [Unknown]
  - Product prescribing error [Unknown]
  - Intentional product use issue [Unknown]
  - Product dose omission issue [Unknown]
  - Rotator cuff syndrome [Unknown]
  - Glucose tolerance impaired [Unknown]
  - Back pain [Unknown]
  - Symptom recurrence [Unknown]

NARRATIVE: CASE EVENT DATE: 20130101
